FAERS Safety Report 10239968 (Version 1)
Quarter: 2014Q2

REPORT INFORMATION
  Report Type: Spontaneous
  Country: US (occurrence: US)
  Receive Date: 20140616
  Receipt Date: 20140616
  Transmission Date: 20141212
  Serious: Yes (Hospitalization)
  Sender: FDA-Public Use
  Company Number: US-GILEAD-2014-0105561

PATIENT
  Sex: Female

DRUGS (3)
  1. LETAIRIS [Suspect]
     Indication: PRODUCT USED FOR UNKNOWN INDICATION
     Route: 065
     Dates: start: 20140219
  2. COUMADIN                           /00014802/ [Concomitant]
  3. ADCIRCA [Concomitant]

REACTIONS (2)
  - Diarrhoea [Unknown]
  - Dehydration [Unknown]
